FAERS Safety Report 5592972-7 (Version None)
Quarter: 2008Q1

REPORT INFORMATION
  Report Type: 
  Country: None (occurrence: None)
  Receive Date: 20080116
  Receipt Date: 20080109
  Transmission Date: 20080703
  Serious: Yes (Other)
  Sender: FDA-Public Use
  Company Number: IT-NOVOPROD-270982

PATIENT
  Sex: Male

DRUGS (3)
  1. NOVONORM [Suspect]
     Indication: DIABETES MELLITUS
     Dosage: 6 MG, QD
     Dates: start: 20070602, end: 20080108
  2. AVANDAMET [Concomitant]
     Dosage: 1000 MG, BID
     Dates: start: 20051212, end: 20071220
  3. NEURONTIN [Concomitant]
     Dosage: 300 MG, QD
     Dates: start: 20051212, end: 20080108

REACTIONS (1)
  - MACULAR OEDEMA [None]
